FAERS Safety Report 19150987 (Version 5)
Quarter: 2021Q2

REPORT INFORMATION
  Report Type: Spontaneous
  Country: JP (occurrence: JP)
  Receive Date: 20210419
  Receipt Date: 20210604
  Transmission Date: 20210717
  Serious: Yes (Death, Hospitalization, Other)
  Sender: FDA-Public Use
  Company Number: JP-009507513-2104JPN000974J

PATIENT
  Age: 44 Year
  Sex: Female
  Weight: 77 kg

DRUGS (6)
  1. KEYTRUDA [Suspect]
     Active Substance: PEMBROLIZUMAB
     Indication: SQUAMOUS CELL CARCINOMA OF LUNG
     Dosage: 200 MILLIGRAM, Q3W
     Route: 041
     Dates: start: 20210119, end: 20210119
  2. ABRAXANE [Concomitant]
     Active Substance: PACLITAXEL
     Dosage: 150 MILLIGRAM, BID
     Route: 042
     Dates: start: 20210126, end: 20210126
  3. PARAPLATIN [Concomitant]
     Active Substance: CARBOPLATIN
     Indication: SQUAMOUS CELL CARCINOMA OF LUNG
     Dosage: 600 MILLIGRAM, QD
     Route: 041
     Dates: start: 20210119, end: 20210119
  4. ABRAXANE [Concomitant]
     Active Substance: PACLITAXEL
     Indication: SQUAMOUS CELL CARCINOMA OF LUNG
     Dosage: 150 MILLIGRAM, BID
     Route: 041
     Dates: start: 20210119, end: 20210119
  5. AMLODIPINE [AMLODIPINE BESILATE] [Concomitant]
     Active Substance: AMLODIPINE BESYLATE
     Dosage: UNK
     Route: 048
  6. MONTELUKAST [MONTELUKAST SODIUM] [Concomitant]
     Active Substance: MONTELUKAST SODIUM
     Dosage: UNK
     Route: 048

REACTIONS (12)
  - Pyrexia [Unknown]
  - Oliguria [Unknown]
  - Immune-mediated myositis [Fatal]
  - Eyelid ptosis [Unknown]
  - Ventricular tachycardia [Recovered/Resolved]
  - Multiple organ dysfunction syndrome [Fatal]
  - Hypercapnia [Unknown]
  - Blood pressure decreased [Unknown]
  - Myasthenia gravis [Fatal]
  - Ventricular fibrillation [Not Recovered/Not Resolved]
  - Pulseless electrical activity [Unknown]
  - Metabolic acidosis [Unknown]

NARRATIVE: CASE EVENT DATE: 202102
